FAERS Safety Report 17250677 (Version 1)
Quarter: 2020Q1

REPORT INFORMATION
  Report Type: Report from Study
  Country: US (occurrence: US)
  Receive Date: 20200109
  Receipt Date: 20200109
  Transmission Date: 20200409
  Serious: Yes (Other)
  Sender: FDA-Public Use
  Company Number: US-GLAXOSMITHKLINE-US2019TSO172303

PATIENT
  Age: 65 Year
  Sex: Female
  Weight: 67 kg

DRUGS (3)
  1. NIRAPARIB [Suspect]
     Active Substance: NIRAPARIB
     Indication: OVARIAN CANCER
     Dosage: 200 MG, QD
     Route: 048
     Dates: start: 20190702
  2. NIRAPARIB [Suspect]
     Active Substance: NIRAPARIB
     Dosage: 200 MG QD IN THE EVENING
     Route: 048
  3. NIRAPARIB [Suspect]
     Active Substance: NIRAPARIB
     Dosage: 200 MG IN THE EVENING AT 7:30 WITH LITTLE SNACK
     Route: 048

REACTIONS (10)
  - Lymphoedema [Unknown]
  - Pain [Unknown]
  - Intervertebral disc protrusion [Not Recovered/Not Resolved]
  - Renal impairment [Recovered/Resolved]
  - Sneezing [Recovered/Resolved]
  - Sitting disability [Unknown]
  - Blood cholesterol increased [Not Recovered/Not Resolved]
  - Lacrimation increased [Recovered/Resolved]
  - Oral mucosal blistering [Unknown]
  - Muscular weakness [Unknown]

NARRATIVE: CASE EVENT DATE: 201909
